FAERS Safety Report 13290753 (Version 1)
Quarter: 2017Q1

REPORT INFORMATION
  Report Type: Spontaneous
  Country: US (occurrence: US)
  Receive Date: 20170303
  Receipt Date: 20170303
  Transmission Date: 20170428
  Serious: Yes (Other)
  Sender: FDA-Public Use
  Company Number: US-PFIZER INC-2017090862

PATIENT
  Age: 84 Year
  Sex: Male

DRUGS (3)
  1. ATENOLOL. [Concomitant]
     Active Substance: ATENOLOL
     Dosage: UNK
     Route: 048
  2. LORAZEPAM. [Suspect]
     Active Substance: LORAZEPAM
     Indication: PANIC ATTACK
     Dosage: UNK
     Route: 065
  3. SYMBICORT [Concomitant]
     Active Substance: BUDESONIDE\FORMOTEROL FUMARATE DIHYDRATE
     Dosage: UNK
     Route: 055

REACTIONS (1)
  - Drug dependence [Unknown]
